FAERS Safety Report 7864682-4 (Version None)
Quarter: 2011Q4

REPORT INFORMATION
  Report Type: 
  Country: None (occurrence: None)
  Receive Date: 20111028
  Receipt Date: 20111024
  Transmission Date: 20120403
  Serious: Yes (Death)
  Sender: FDA-Public Use
  Company Number: EG-PFIZER INC-2011257227

PATIENT
  Age: 87 Year
  Sex: Male

DRUGS (5)
  1. PIPERACILLIN AND TAZOBACTAM [Suspect]
     Indication: PNEUMONIA
     Dosage: 4.5 G, 3X/DAY
     Route: 042
     Dates: start: 20111014
  2. PANTOPRAZOLE [Concomitant]
     Dosage: UNK
     Dates: start: 20111014, end: 20111021
  3. ENOXAPARIN SODIUM [Concomitant]
     Dosage: UNK
     Dates: start: 20111014, end: 20111021
  4. ZYVOX [Suspect]
     Indication: PNEUMONIA
     Dosage: 600 MG, 2X/DAY
     Route: 042
     Dates: start: 20111014
  5. WARFARIN SODIUM [Concomitant]
     Indication: COAGULOPATHY
     Dosage: UNK
     Dates: start: 20111014, end: 20111021

REACTIONS (1)
  - HAEMATEMESIS [None]
